FAERS Safety Report 11522086 (Version 1)
Quarter: 2015Q3

REPORT INFORMATION
  Report Type: Spontaneous
  Country: US (occurrence: US)
  Receive Date: 20150918
  Receipt Date: 20150918
  Transmission Date: 20151125
  Serious: Yes (Other)
  Sender: FDA-Public Use
  Company Number: US-ROCHE-683971

PATIENT
  Age: 60 Year
  Sex: Male

DRUGS (7)
  1. COPEGUS [Suspect]
     Active Substance: RIBAVIRIN
     Dosage: DIVIDED DOSES; DOSE INCREASED
     Route: 048
  2. METHADONE [Suspect]
     Active Substance: METHADONE HYDROCHLORIDE
     Route: 065
  3. COPEGUS [Suspect]
     Active Substance: RIBAVIRIN
     Dosage: DIVIDED DOSES
     Route: 048
  4. METHADONE [Suspect]
     Active Substance: METHADONE HYDROCHLORIDE
     Indication: PRODUCT USED FOR UNKNOWN INDICATION
     Route: 065
  5. DONNATAL [Concomitant]
     Active Substance: ATROPINE SULFATE\HYOSCYAMINE SULFATE\PHENOBARBITAL\SCOPOLAMINE HYDROBROMIDE
     Indication: IRRITABLE BOWEL SYNDROME
     Dosage: FORM REPORTED AS ^PILLS^
     Route: 065
  6. PEGASYS [Suspect]
     Active Substance: PEGINTERFERON ALFA-2A
     Indication: HEPATITIS C
     Dosage: FORM: PRE-FILLED SYRINGE
     Route: 058
     Dates: start: 20100129, end: 20100709
  7. COPEGUS [Suspect]
     Active Substance: RIBAVIRIN
     Indication: HEPATITIS C
     Dosage: TAKEN IN DIVIDED DOSES
     Route: 048

REACTIONS (32)
  - Lip dry [Not Recovered/Not Resolved]
  - Mood swings [Not Recovered/Not Resolved]
  - Oropharyngeal pain [Not Recovered/Not Resolved]
  - Hypophagia [Not Recovered/Not Resolved]
  - Vision blurred [Recovering/Resolving]
  - Eructation [Not Recovered/Not Resolved]
  - Pruritus generalised [Not Recovered/Not Resolved]
  - Pyrexia [Recovered/Resolved]
  - Abdominal pain [Unknown]
  - Vomiting [Unknown]
  - Gastric disorder [Unknown]
  - Fatigue [Not Recovered/Not Resolved]
  - Pruritus [Unknown]
  - Diarrhoea [Unknown]
  - Constipation [Not Recovered/Not Resolved]
  - Nausea [Recovering/Resolving]
  - White blood cell count decreased [Unknown]
  - Anaemia [Not Recovered/Not Resolved]
  - Muscular weakness [Unknown]
  - Weight decreased [Unknown]
  - Malaise [Recovering/Resolving]
  - Blood sodium increased [Unknown]
  - Inappropriate schedule of drug administration [Unknown]
  - Chapped lips [Not Recovered/Not Resolved]
  - Asthenia [Unknown]
  - Influenza like illness [Unknown]
  - Diabetes mellitus [Unknown]
  - Blister [Not Recovered/Not Resolved]
  - Eye irritation [Not Recovered/Not Resolved]
  - Decreased appetite [Unknown]
  - Red blood cell count decreased [Not Recovered/Not Resolved]
  - Pruritus genital [Recovered/Resolved]

NARRATIVE: CASE EVENT DATE: 20100131
